FAERS Safety Report 10051497 (Version 1)
Quarter: 2014Q2

REPORT INFORMATION
  Report Type: Spontaneous
  Country: FR (occurrence: FR)
  Receive Date: 20140401
  Receipt Date: 20140401
  Transmission Date: 20141212
  Serious: Yes (Hospitalization)
  Sender: FDA-Public Use
  Company Number: FR-B.I. PHARMACEUTICALS,INC./RIDGEFIELD-2014-BI-13489FF

PATIENT
  Age: 79 Year
  Sex: Male

DRUGS (7)
  1. PRADAXA [Suspect]
     Indication: ATRIAL FIBRILLATION
     Dosage: 220 MG
     Route: 048
     Dates: start: 20130706, end: 20140310
  2. VALSARTAN [Suspect]
     Indication: PRODUCT USED FOR UNKNOWN INDICATION
     Dosage: 160 MG
     Route: 048
     Dates: end: 20140310
  3. FENOFIBRATE [Suspect]
     Indication: PRODUCT USED FOR UNKNOWN INDICATION
     Dosage: 145 MG
     Route: 048
     Dates: end: 20140310
  4. ZOLPIDEM [Suspect]
     Indication: PRODUCT USED FOR UNKNOWN INDICATION
     Dosage: 7.5 MG
     Route: 048
     Dates: end: 20140310
  5. LASILIX 40 MG [Concomitant]
     Dosage: 60 MG
     Route: 048
     Dates: end: 20140310
  6. DETENSIEL 10 MG [Concomitant]
     Dosage: 10 MG
     Route: 048
  7. AMIODARONE [Concomitant]
     Dosage: 142.8571 MG
     Route: 048

REACTIONS (1)
  - Renal failure acute [Not Recovered/Not Resolved]
